FAERS Safety Report 18943335 (Version 1)
Quarter: 2021Q1

REPORT INFORMATION
  Report Type: Spontaneous
  Country: US (occurrence: US)
  Receive Date: 20210226
  Receipt Date: 20210226
  Transmission Date: 20210420
  Serious: Yes (Other)
  Sender: FDA-Public Use
  Company Number: US-TEVA-2021-US-1883275

PATIENT
  Age: 74 Year
  Sex: Female

DRUGS (1)
  1. CEFALEXIN [Suspect]
     Active Substance: CEPHALEXIN
     Indication: CELLULITIS
     Dosage: DOSE: 3 CAPSULES PER DAY
     Route: 065

REACTIONS (8)
  - White blood cell count increased [Unknown]
  - Gastritis [Unknown]
  - Fluid retention [Not Recovered/Not Resolved]
  - Functional gastrointestinal disorder [Unknown]
  - Gastrointestinal disorder [Not Recovered/Not Resolved]
  - Bowel movement irregularity [Recovered/Resolved]
  - Urinary retention [Not Recovered/Not Resolved]
  - Urine flow decreased [Not Recovered/Not Resolved]

NARRATIVE: CASE EVENT DATE: 20210215
